FAERS Safety Report 9154890 (Version 3)
Quarter: 2013Q1

REPORT INFORMATION
  Report Type: Spontaneous
  Country: GR (occurrence: GR)
  Receive Date: 20130311
  Receipt Date: 20130325
  Transmission Date: 20140127
  Serious: No
  Sender: FDA-Public Use
  Company Number: PHHY2013GR023584

PATIENT
  Age: 84 Year
  Sex: Female

DRUGS (6)
  1. TASIGNA [Suspect]
     Indication: CHRONIC MYELOID LEUKAEMIA
     Dosage: 800 MG, UNK
  2. DIOVAN [Concomitant]
     Dosage: 160 MG, DAILY
  3. SALOSPIR [Concomitant]
     Dosage: 100 MG, DAILY
  4. NEUROBION [Concomitant]
  5. CIPRALEX [Concomitant]
     Dosage: 5 MG, UNK
  6. LYRICA [Concomitant]

REACTIONS (5)
  - Escherichia infection [Unknown]
  - Microangiopathy [Not Recovered/Not Resolved]
  - Hyperaemia [Recovered/Resolved]
  - Oedema peripheral [Recovered/Resolved]
  - Skin ulcer [Not Recovered/Not Resolved]
